FAERS Safety Report 4570353-2 (Version None)
Quarter: 2005Q1

REPORT INFORMATION
  Report Type: 
  Country: None (occurrence: None)
  Receive Date: 20050204
  Receipt Date: 20050126
  Transmission Date: 20050727
  Serious: Yes (Life-Threatening)
  Sender: FDA-Public Use
  Company Number: FR-ROCHE-393664

PATIENT
  Age: 64 Year
  Sex: Female

DRUGS (11)
  1. CELLCEPT [Suspect]
     Indication: DRUG USE FOR UNKNOWN INDICATION
     Route: 042
     Dates: start: 20040831, end: 20041003
  2. FLUDARA [Suspect]
     Indication: DRUG USE FOR UNKNOWN INDICATION
     Route: 042
     Dates: start: 20040828, end: 20040901
  3. FLUDARA [Suspect]
     Route: 042
     Dates: start: 19990515, end: 20010515
  4. FLUDARA [Suspect]
     Route: 042
     Dates: start: 20040315, end: 20040715
  5. SANDIMMUNE [Suspect]
     Indication: DRUG USE FOR UNKNOWN INDICATION
     Route: 042
     Dates: start: 20040831
  6. ENDOXAN [Suspect]
     Indication: DRUG USE FOR UNKNOWN INDICATION
     Dosage: DOSE REPORTED AS ^2.7G AT TOTAL^
     Route: 042
     Dates: start: 20040828, end: 20040828
  7. ENDOXAN [Suspect]
     Route: 042
     Dates: start: 19990515, end: 20010515
  8. ENDOXAN [Suspect]
     Route: 042
     Dates: start: 20021215, end: 20030315
  9. ENDOXAN [Suspect]
     Route: 042
     Dates: start: 20040315, end: 20040715
  10. CHOP [Concomitant]
     Dosage: 7 CYCLES OF THERAPY RECEIVED.
     Dates: start: 20020415, end: 20020915
  11. DIHYDROPYRIDINE [Concomitant]
     Dosage: 1 CYCLE OF ^R-DHP^ RECEIVED
     Dates: start: 20030315

REACTIONS (1)
  - ENCEPHALOPATHY [None]
